FAERS Safety Report 4477608-0 (Version None)
Quarter: 2004Q4

REPORT INFORMATION
  Report Type: 
  Country: None (occurrence: None)
  Receive Date: 20041013
  Receipt Date: 20040929
  Transmission Date: 20050328
  Serious: Yes (Hospitalization)
  Sender: FDA-Public Use
  Company Number: FR_040904891

PATIENT
  Age: 39 Year
  Sex: Male
  Weight: 79 kg

DRUGS (4)
  1. PERGOLIDE MESYLATE [Suspect]
     Indication: PARKINSON'S DISEASE
     Dates: start: 20020605
  2. MANTADIX    (AMANTADINE HYDROCHLORIDE) [Concomitant]
  3. ARTANE [Concomitant]
  4. INIPOMP    (PANTROPRAZOLE) [Concomitant]

REACTIONS (1)
  - VENTRICULAR FIBRILLATION [None]
